FAERS Safety Report 4516636-3 (Version None)
Quarter: 2004Q4

REPORT INFORMATION
  Report Type: 
  Country: None (occurrence: None)
  Receive Date: 20041202
  Receipt Date: 20041119
  Transmission Date: 20050328
  Serious: Yes (Life-Threatening, Hospitalization, Disabling)
  Sender: FDA-Public Use
  Company Number: US-MERCK-0411USA03399

PATIENT
  Sex: Male

DRUGS (3)
  1. VIOXX [Suspect]
     Indication: INFLAMMATION
     Route: 048
     Dates: end: 20031101
  2. VICODIN [Concomitant]
     Route: 065
  3. [THERAPY UNSPECIFIED] [Concomitant]
     Route: 065

REACTIONS (2)
  - GASTRIC DISORDER [None]
  - ULCER [None]
